FAERS Safety Report 24576504 (Version 3)
Quarter: 2024Q4

REPORT INFORMATION
  Report Type: Spontaneous
  Country: CN (occurrence: CN)
  Receive Date: 20241104
  Receipt Date: 20241114
  Transmission Date: 20250115
  Serious: Yes (Other)
  Sender: PFIZER
  Company Number: CN-PFIZER INC-PV202400141807

PATIENT
  Age: 5 Year
  Sex: Female

DRUGS (4)
  1. CYTARABINE [Suspect]
     Active Substance: CYTARABINE
     Indication: Neoplasm malignant
     Dosage: 36 MG, 1X/DAY
     Route: 037
     Dates: start: 20241010, end: 20241010
  2. METHOTREXATE SODIUM [Suspect]
     Active Substance: METHOTREXATE SODIUM
     Indication: Neoplasm malignant
     Dosage: 12.5 MG, 1X/DAY
     Route: 037
     Dates: start: 20241010, end: 20241010
  3. IDARUBICIN HYDROCHLORIDE [Suspect]
     Active Substance: IDARUBICIN HYDROCHLORIDE
     Indication: Neoplasm malignant
     Dosage: 5 MG, 1X/DAY
     Route: 041
     Dates: start: 20241008, end: 20241009
  4. IDARUBICIN HYDROCHLORIDE [Suspect]
     Active Substance: IDARUBICIN HYDROCHLORIDE
     Dosage: 5 MG, 1X/DAY
     Route: 041
     Dates: start: 20241015, end: 20241015

REACTIONS (1)
  - Haemophilus infection [Recovering/Resolving]

NARRATIVE: CASE EVENT DATE: 20241021
